FAERS Safety Report 8025587-1 (Version None)
Quarter: 2012Q1

REPORT INFORMATION
  Report Type: 
  Country: None (occurrence: None)
  Receive Date: 20120105
  Receipt Date: 20120103
  Transmission Date: 20120608
  Serious: No
  Sender: FDA-Public Use
  Company Number: US-B.I. PHARMACEUTICALS,INC./RIDGEFIELD-2012-BP-00145BP

PATIENT
  Sex: Male

DRUGS (2)
  1. DIGOXIN [Concomitant]
     Indication: TACHYCARDIA
     Dosage: 250 MCG
     Route: 048
     Dates: start: 20070101
  2. PRADAXA [Suspect]
     Indication: ATRIAL FIBRILLATION
     Dosage: 300 MG
     Route: 048
     Dates: start: 20111217

REACTIONS (2)
  - ARTHRALGIA [None]
  - HYPOAESTHESIA [None]
